FAERS Safety Report 15783688 (Version 1)
Quarter: 2019Q1

REPORT INFORMATION
  Report Type: Spontaneous
  Country: DE (occurrence: DE)
  Receive Date: 20190102
  Receipt Date: 20190102
  Transmission Date: 20190417
  Serious: Yes (Other)
  Sender: FDA-Public Use
  Company Number: DE-009507513-1812DEU011962

PATIENT
  Age: 30 Year
  Sex: Female
  Weight: 110 kg

DRUGS (1)
  1. CIRCLET [Suspect]
     Active Substance: ETHINYL ESTRADIOL\ETONOGESTREL
     Dosage: PERMANENT, WEAR RING FOR 3 WEEKS, REMOVE IN THE 4TH WEEK (MENOPAUSE)
     Route: 067
     Dates: start: 20180105, end: 20180520

REACTIONS (18)
  - Sensory level abnormal [Recovered/Resolved]
  - Panic attack [Recovered/Resolved]
  - Peripheral vascular disorder [Recovered/Resolved]
  - Illusion [Recovered/Resolved]
  - Anxiety disorder [Recovered/Resolved]
  - Weight decreased [Recovered/Resolved]
  - Suicidal ideation [Recovered/Resolved]
  - Somnolence [Recovered/Resolved]
  - Somnolence [Recovered/Resolved]
  - Dry skin [Recovered/Resolved]
  - Depression [Recovered/Resolved]
  - Chills [Recovered/Resolved]
  - Rash generalised [Recovered/Resolved]
  - Acne [Recovered/Resolved]
  - Fatigue [Recovered/Resolved]
  - Cardiovascular disorder [Recovered/Resolved]
  - Arrhythmia [Recovered/Resolved]
  - Mood swings [Recovered/Resolved]

NARRATIVE: CASE EVENT DATE: 20180115
